FAERS Safety Report 26047157 (Version 1)
Quarter: 2025Q4

REPORT INFORMATION
  Report Type: Spontaneous
  Country: CH (occurrence: CH)
  Receive Date: 20251114
  Receipt Date: 20251114
  Transmission Date: 20260118
  Serious: Yes (Life-Threatening, Other)
  Sender: PHARMACOSMOS A/S
  Company Number: CH-NEBO-711859

PATIENT
  Age: 78 Year
  Sex: Female

DRUGS (12)
  1. AMIODARONE HYDROCHLORIDE [Concomitant]
     Active Substance: AMIODARONE HYDROCHLORIDE
     Dates: start: 2021
  2. AMIODARONE HYDROCHLORIDE [Concomitant]
     Active Substance: AMIODARONE HYDROCHLORIDE
     Dates: start: 20250620
  3. RIVAROXABAN [Concomitant]
     Active Substance: RIVAROXABAN
     Dates: start: 20250620
  4. HYDROCHLOROTHIAZIDE\IRBESARTAN [Concomitant]
     Active Substance: HYDROCHLOROTHIAZIDE\IRBESARTAN
     Dosage: 150/12.5 MG
     Dates: start: 20250620
  5. AMLODIPINE BESYLATE [Concomitant]
     Active Substance: AMLODIPINE BESYLATE
     Dates: start: 20250620
  6. METOPROLOL TARTRATE [Concomitant]
     Active Substance: METOPROLOL TARTRATE
     Dates: start: 20250620
  7. TORSEMIDE [Concomitant]
     Active Substance: TORSEMIDE
     Dates: start: 20250620
  8. IRON ISOMALTOSIDE 1000 [Suspect]
     Active Substance: IRON ISOMALTOSIDE 1000
     Indication: Serum ferritin decreased
     Dates: start: 20251016, end: 20251016
  9. IRON ISOMALTOSIDE 1000 [Suspect]
     Active Substance: IRON ISOMALTOSIDE 1000
     Indication: Nephrogenic anaemia
     Dates: start: 20251016, end: 20251016
  10. FEBUXOSTAT [Concomitant]
     Active Substance: FEBUXOSTAT
     Dates: start: 20250620
  11. Mybiotik protect [Concomitant]
  12. FLUTICASONE PROPIONATE\SALMETEROL XINAFOATE [Concomitant]
     Active Substance: FLUTICASONE PROPIONATE\SALMETEROL XINAFOATE
     Dosage: 250, RECEIVED AT THE DOSE OF 1 DF (EVENING)?500, RECEIVED AT THE DOSE OF 1 DF (MORNING)
     Dates: start: 20250620

REACTIONS (2)
  - Anaphylactic shock [Recovered/Resolved]
  - Cardiogenic shock [Recovered/Resolved]

NARRATIVE: CASE EVENT DATE: 20251016
